FAERS Safety Report 9070205 (Version 1)
Quarter: 2013Q1

REPORT INFORMATION
  Report Type: Spontaneous
  Country: US (occurrence: US)
  Receive Date: 20130129
  Receipt Date: 20130129
  Transmission Date: 20140127
  Serious: No
  Sender: FDA-Public Use
  Company Number: US-ABBOTT-12P-163-0940242-00

PATIENT
  Sex: Male
  Weight: 65.83 kg

DRUGS (4)
  1. HUMIRA 40 MG/0.8 ML PEN [Suspect]
     Indication: CROHN^S DISEASE
     Dates: start: 200907, end: 201203
  2. HUMIRA 40 MG/0.8 ML PEN [Suspect]
     Dates: end: 201203
  3. COLEZAL [Concomitant]
     Indication: CROHN^S DISEASE
  4. ERSIDIAL [Concomitant]
     Indication: ILL-DEFINED DISORDER

REACTIONS (3)
  - Fatigue [Not Recovered/Not Resolved]
  - Anaemia [Recovering/Resolving]
  - Haemorrhage [Unknown]
